FAERS Safety Report 18849048 (Version 2)
Quarter: 2024Q2

REPORT INFORMATION
  Report Type: Other
  Country: CN (occurrence: None)
  Receive Date: 20210205
  Receipt Date: 20240529
  Transmission Date: 20240715
  Serious: Yes (Death, Other)
  Sender: FDA-Public Use
  Company Number: CN-ROCHE-2762135

PATIENT

DRUGS (17)
  1. MYCOPHENOLATE MOFETIL [Suspect]
     Active Substance: MYCOPHENOLATE MOFETIL
     Indication: Prophylaxis against graft versus host disease
     Route: 065
  2. CYCLOSPORINE [Suspect]
     Active Substance: CYCLOSPORINE
     Indication: Prophylaxis against graft versus host disease
     Route: 065
  3. CYCLOPHOSPHAMIDE [Suspect]
     Active Substance: CYCLOPHOSPHAMIDE
     Indication: Cord blood transplant therapy
     Dosage: 3-2 DAYS BEFORE TRANSPLANTATION
     Route: 042
  4. CYTARABINE [Suspect]
     Active Substance: CYTARABINE
     Indication: Cord blood transplant therapy
     Dosage: 5 -4 DAYS BEFORE TRANSPLANTATION
     Route: 042
  5. CYTARABINE [Suspect]
     Active Substance: CYTARABINE
     Dosage: ON THE 9TH TO 8TH DAY BEFORE TRANSPLANTATION
     Route: 042
  6. BUSULFAN [Suspect]
     Active Substance: BUSULFAN
     Indication: Cord blood transplant therapy
     Dosage: ON THE 7TH TO 4TH DAY BEFORE TRANSPLANTATION
     Route: 042
  7. FLUDARABINE [Suspect]
     Active Substance: FLUDARABINE PHOSPHATE
     Indication: Cord blood transplant therapy
     Dosage: ON THE 8TH TO 5TH DAY BEFORE TRANSPLANTATION
     Route: 042
  8. UNSPECIFIED INGREDIENT [Concomitant]
     Active Substance: UNSPECIFIED INGREDIENT
     Dosage: 100 U/KG/DAY
  9. ALPROSTADIL [Concomitant]
     Active Substance: ALPROSTADIL
     Dosage: 0.03 UG/KG/D
  10. ACYCLOVIR [Concomitant]
     Active Substance: ACYCLOVIR
     Indication: Antiviral prophylaxis
     Dosage: 10 MG/KG/D FROM THE 1ST DAY TO THE 35TH DAY AFTER TRANSPLANTATION
  11. FLUCONAZOLE [Concomitant]
     Active Substance: FLUCONAZOLE
     Indication: Antifungal prophylaxis
     Route: 048
  12. ITRACONAZOLE [Concomitant]
     Active Substance: ITRACONAZOLE
     Indication: Antifungal prophylaxis
     Route: 048
  13. VORICONAZOLE [Concomitant]
     Active Substance: VORICONAZOLE
  14. POSACONAZOLE [Concomitant]
     Active Substance: POSACONAZOLE
  15. SULFAMETHOXAZOLE\TRIMETHOPRIM [Concomitant]
     Active Substance: SULFAMETHOXAZOLE\TRIMETHOPRIM
  16. FOSCARNET SODIUM [Concomitant]
     Active Substance: FOSCARNET SODIUM
  17. IMMUNE GLOBULIN NOS [Concomitant]
     Active Substance: IMMUNE GLOBULIN NOS
     Route: 042

REACTIONS (9)
  - Infection [Fatal]
  - Multiple organ dysfunction syndrome [Fatal]
  - Cytomegalovirus viraemia [Unknown]
  - Pseudomonas infection [Unknown]
  - Alpha haemolytic streptococcal infection [Unknown]
  - Escherichia infection [Unknown]
  - Klebsiella infection [Unknown]
  - Haematological infection [Unknown]
  - Off label use [Unknown]
